FAERS Safety Report 12144426 (Version 1)
Quarter: 2016Q1

REPORT INFORMATION
  Report Type: Spontaneous
  Country: US (occurrence: None)
  Receive Date: 20160303
  Receipt Date: 20160303
  Transmission Date: 20160526
  Serious: Yes (Disabling)
  Sender: FDA-Public Use
  Company Number: None

PATIENT
  Age: 26 Year
  Sex: Male
  Weight: 102.06 kg

DRUGS (1)
  1. CIPROFLOXACIN 500MG TABLETS COBALT [Suspect]
     Active Substance: CIPROFLOXACIN
     Indication: URINARY TRACT INFECTION
     Dosage: 1 PILL TWICE DAILY TAKEN BY MOUTH
     Route: 048
     Dates: start: 20160223, end: 20160224

REACTIONS (7)
  - Musculoskeletal stiffness [None]
  - Arthropathy [None]
  - Tendon pain [None]
  - Neuralgia [None]
  - Tendon disorder [None]
  - Muscle spasms [None]
  - Diarrhoea [None]

NARRATIVE: CASE EVENT DATE: 20160223
